FAERS Safety Report 16499924 (Version 1)
Quarter: 2019Q3

REPORT INFORMATION
  Report Type: Spontaneous
  Country: IT (occurrence: IT)
  Receive Date: 20190701
  Receipt Date: 20190701
  Transmission Date: 20191004
  Serious: Yes (Other)
  Sender: FDA-Public Use
  Company Number: IT-ASTRAZENECA-2019SE92535

PATIENT
  Age: 89 Year
  Sex: Female

DRUGS (4)
  1. ESOPRAL [Suspect]
     Active Substance: ESOMEPRAZOLE MAGNESIUM
     Indication: PRODUCT USED FOR UNKNOWN INDICATION
     Route: 048
     Dates: start: 20190101, end: 20190306
  2. ZYLLT [Concomitant]
     Active Substance: CLOPIDOGREL BISULFATE
  3. NORVASC [Concomitant]
     Active Substance: AMLODIPINE BESYLATE
  4. NATECAL [Concomitant]
     Active Substance: CALCIUM CARBONATE\CHOLECALCIFEROL

REACTIONS (2)
  - Blood sodium decreased [Recovering/Resolving]
  - Syncope [Recovering/Resolving]

NARRATIVE: CASE EVENT DATE: 20190306
